FAERS Safety Report 16635838 (Version 1)
Quarter: 2019Q3

REPORT INFORMATION
  Report Type: Spontaneous
  Country: GB (occurrence: GB)
  Receive Date: 20190726
  Receipt Date: 20190726
  Transmission Date: 20191004
  Serious: Yes (Hospitalization)
  Sender: FDA-Public Use
  Company Number: GB-TEVA-2019-GB-1083449

PATIENT
  Age: 73 Year
  Sex: Male

DRUGS (32)
  1. ATORVASTATIN [Suspect]
     Active Substance: ATORVASTATIN
     Route: 065
  2. CASSIA [Concomitant]
     Dosage: AT NIGHT
  3. CITALOPRAM [Concomitant]
     Active Substance: CITALOPRAM HYDROBROMIDE
  4. FLETCHER^S PHOSPHATE ENEMA [Concomitant]
  5. DULOXETINE. [Concomitant]
     Active Substance: DULOXETINE
  6. ZOPICLONE [Concomitant]
     Active Substance: ZOPICLONE
     Dosage: AT NIGHT.
  7. ULTIBRO BREEZHALER [Concomitant]
     Active Substance: GLYCOPYRRONIUM\INDACATEROL
     Dosage: 85MICROGRAM/43MICROGRAM
     Route: 055
  8. CIPROFLOXACIN. [Suspect]
     Active Substance: CIPROFLOXACIN
     Route: 065
  9. FUROSEMIDE. [Concomitant]
     Active Substance: FUROSEMIDE
     Dosage: EACH MORNING AND LUNCHTIME.
  10. HUMULIN M3 [Concomitant]
     Active Substance: INSULIN HUMAN
     Dosage: 100UNITS/ML
     Route: 058
  11. LEVOTHYROXINE. [Concomitant]
     Active Substance: LEVOTHYROXINE
     Dosage: EACH MORNING BEFORE BREAKFAST.
  12. UREA. [Concomitant]
     Active Substance: UREA
  13. LACTULOSE. [Concomitant]
     Active Substance: LACTULOSE
     Dosage: 3.1-3.7G/5ML. 15ML TWICE A DAY.
     Route: 048
  14. LONGTEC [Concomitant]
     Active Substance: OXYCODONE HYDROCHLORIDE
     Dosage: NIGHT.
  15. LANSOPRAZOLE. [Concomitant]
     Active Substance: LANSOPRAZOLE
  16. ACETYLSALICYLIC ACID [Concomitant]
     Active Substance: ASPIRIN
  17. PREGABALIN. [Concomitant]
     Active Substance: PREGABALIN
  18. CICLOSPORIN [Concomitant]
     Active Substance: CYCLOSPORINE
     Dosage: LEFT EYE
     Route: 047
  19. FLUCONAZOLE. [Suspect]
     Active Substance: FLUCONAZOLE
     Route: 065
  20. DOCUSATE [Concomitant]
     Active Substance: DOCUSATE
  21. LAXIDO [Concomitant]
     Active Substance: POLYETHYLENE GLYCOL 3350\POTASSIUM CHLORIDE\SODIUM BICARBONATE\SODIUM CHLORIDE
  22. TEICOPLANIN [Suspect]
     Active Substance: TEICOPLANIN
     Route: 065
  23. OXYCODONE [Concomitant]
     Active Substance: OXYCODONE
     Dosage: 5MG/5ML. FOUR TIMES A DAY
     Route: 048
  24. COLECALCIFEROL [Concomitant]
     Active Substance: CHOLECALCIFEROL
  25. LAMOTRIGINE. [Concomitant]
     Active Substance: LAMOTRIGINE
  26. CALMURID [Concomitant]
     Dosage: A THICK LAYER FOR 3-5 MINUTES, MASSAGE INTO AREA AND REMOVE EXCESS. USUALLY TWICE DAILY.
  27. CARBOMERS [Concomitant]
     Route: 047
  28. PARACETAMOL [Suspect]
     Active Substance: ACETAMINOPHEN
     Route: 065
  29. SODIUM HYALURONATE [Concomitant]
     Active Substance: HYALURONATE SODIUM
     Dosage: EACH MORNING.
  30. MOVELAT [Concomitant]
  31. HYLO-TEAR [Concomitant]
     Dosage: ONE DROP TO LEFT EYE.
     Route: 047
  32. E45 [Concomitant]
     Active Substance: LANOLIN\LIGHT MINERAL OIL\PARAFFIN
     Dosage: AS DIRECTED.

REACTIONS (1)
  - Liver function test abnormal [Recovered/Resolved]
